FAERS Safety Report 22305554 (Version 3)
Quarter: 2023Q2

REPORT INFORMATION
  Report Type: Spontaneous
  Country: US (occurrence: US)
  Receive Date: 20230510
  Receipt Date: 20230523
  Transmission Date: 20230721
  Serious: Yes (Death)
  Sender: FDA-Public Use
  Company Number: US-KARYOPHARM-2023KPT001170

PATIENT

DRUGS (4)
  1. XPOVIO [Suspect]
     Active Substance: SELINEXOR
     Indication: Plasma cell myeloma
     Dosage: 80 MG, WEEKLY
     Route: 048
     Dates: start: 20230419, end: 202305
  2. POMALYST [Concomitant]
     Active Substance: POMALIDOMIDE
     Dosage: 4 MG, WEEKLY (21-DAY CYCLE THEN 1 WEEK OFF)
     Dates: start: 20230424
  3. DEXAMETHASONE [Concomitant]
     Active Substance: DEXAMETHASONE
     Dosage: UNK, WEEKLY
     Dates: start: 20230424
  4. ELOTUZUMAB [Concomitant]
     Active Substance: ELOTUZUMAB
     Dosage: UNK, WEEKLY
     Dates: start: 20230424

REACTIONS (5)
  - Death [Fatal]
  - Pain [Unknown]
  - Nausea [Unknown]
  - Haemoglobin decreased [Unknown]
  - Platelet count decreased [Unknown]

NARRATIVE: CASE EVENT DATE: 20230401
